FAERS Safety Report 8101505-2 (Version None)
Quarter: 2012Q1

REPORT INFORMATION
  Report Type: 
  Country: None (occurrence: None)
  Receive Date: 20120129
  Receipt Date: 20111010
  Transmission Date: 20120608
  Serious: No
  Sender: FDA-Public Use
  Company Number: US-ABBOTT-11P-163-0863057-00

PATIENT
  Age: 47 Year
  Sex: Male

DRUGS (1)
  1. HUMIRA [Suspect]
     Indication: ANKYLOSING SPONDYLITIS
     Dates: start: 20110801

REACTIONS (5)
  - NECK PAIN [None]
  - ANKYLOSING SPONDYLITIS [None]
  - NASOPHARYNGITIS [None]
  - THERAPY REGIMEN CHANGED [None]
  - RHINORRHOEA [None]
